FAERS Safety Report 25596571 (Version 1)
Quarter: 2025Q3

REPORT INFORMATION
  Report Type: Spontaneous
  Country: EU (occurrence: EU)
  Receive Date: 20250723
  Receipt Date: 20250723
  Transmission Date: 20251020
  Serious: Yes (Disabling, Congenital Anomaly, Other)
  Sender: PFIZER
  Company Number: EU-FERRINGPH-2025FE03692

PATIENT

DRUGS (1)
  1. DINOPROSTONE [Suspect]
     Active Substance: DINOPROSTONE
     Route: 064

REACTIONS (4)
  - Foetal exposure during delivery [Unknown]
  - Brain injury [Unknown]
  - Foetal acidosis [Unknown]
  - Apgar score low [Unknown]
